FAERS Safety Report 5932224-6 (Version None)
Quarter: 2008Q4

REPORT INFORMATION
  Report Type: 
  Country: None (occurrence: None)
  Receive Date: 20081021
  Receipt Date: 20081006
  Transmission Date: 20090506
  Serious: Yes (Congenital Anomaly, Other)
  Sender: FDA-Public Use
  Company Number: 2008100018

PATIENT

DRUGS (2)
  1. MEPROBAMATE [Suspect]
     Dosage: (2000 MG) ,TRANSPLACENTAL
     Route: 064
  2. DIAZEPAM [Suspect]
     Dosage: (50 GM) ,TRANSPLACENTAL
     Route: 064

REACTIONS (5)
  - DRUG EXPOSURE DURING PREGNANCY [None]
  - HIP DYSPLASIA [None]
  - MATERNAL DRUGS AFFECTING FOETUS [None]
  - POISONING DELIBERATE [None]
  - SUICIDE ATTEMPT [None]
